FAERS Safety Report 6308238-3 (Version None)
Quarter: 2009Q3

REPORT INFORMATION
  Report Type: 
  Country: None (occurrence: None)
  Receive Date: 20090813
  Receipt Date: 20090521
  Transmission Date: 20100115
  Serious: Yes (Other)
  Sender: FDA-Public Use
  Company Number: JP-PFIZER INC-2009235884

PATIENT
  Age: 65 Year

DRUGS (7)
  1. MIGLITOL [Suspect]
     Indication: DIABETES MELLITUS
     Dosage: UNK
     Route: 048
     Dates: start: 20080811, end: 20090115
  2. ISONIAZID [Suspect]
     Indication: PULMONARY TUBERCULOSIS
     Dosage: UNK
     Route: 048
     Dates: start: 20080811, end: 20081225
  3. ISONIAZID [Suspect]
     Dosage: UNK
     Route: 065
     Dates: start: 20090319
  4. RIFAMPICIN [Suspect]
     Indication: PULMONARY TUBERCULOSIS
     Dosage: UNK
     Route: 048
     Dates: start: 20080811, end: 20081225
  5. RIFAMPICIN [Suspect]
     Dosage: UNK
     Route: 065
     Dates: start: 20090319
  6. AMARYL [Suspect]
     Indication: DIABETES MELLITUS
     Dosage: UNK
     Route: 048
     Dates: start: 20080811
  7. STREPTOMYCIN [Concomitant]
     Indication: PULMONARY TUBERCULOSIS
     Dosage: 2 IU OW, UNK
     Route: 058
     Dates: start: 20080811, end: 20081225

REACTIONS (3)
  - ALANINE AMINOTRANSFERASE INCREASED [None]
  - ASPARTATE AMINOTRANSFERASE INCREASED [None]
  - HEPATITIS [None]
